FAERS Safety Report 8793202 (Version 2)
Quarter: 2015Q1

REPORT INFORMATION
  Report Type: Report from Study
  Country: US (occurrence: US)
  Receive Date: 20120918
  Receipt Date: 20150313
  Transmission Date: 20150721
  Serious: Yes (Death)
  Sender: FDA-Public Use
  Company Number: US-ROCHE-1124268

PATIENT
  Age: 50 Year
  Sex: Male

DRUGS (12)
  1. AVASTIN [Suspect]
     Active Substance: BEVACIZUMAB
     Indication: BRAIN NEOPLASM MALIGNANT
     Route: 042
  2. ATROPINE [Concomitant]
     Active Substance: ATROPINE
     Indication: ABDOMINAL PAIN
     Route: 042
  3. ACIPHEX [Concomitant]
     Active Substance: RABEPRAZOLE SODIUM
     Route: 065
  4. ALLEGRA [Concomitant]
     Active Substance: FEXOFENADINE HYDROCHLORIDE
     Route: 065
  5. ATROPINE [Concomitant]
     Active Substance: ATROPINE
     Indication: DIARRHOEA
  6. KEPPRA [Concomitant]
     Active Substance: LEVETIRACETAM
     Route: 065
  7. IRINOTECAN [Concomitant]
     Active Substance: IRINOTECAN
     Route: 042
  8. GRANISETRON [Concomitant]
     Active Substance: GRANISETRON
     Route: 048
  9. RANITIDINE [Concomitant]
     Active Substance: RANITIDINE\RANITIDINE HYDROCHLORIDE
     Route: 065
  10. DILANTIN [Concomitant]
     Active Substance: PHENYTOIN
     Route: 065
  11. PROZAC [Concomitant]
     Active Substance: FLUOXETINE HYDROCHLORIDE
     Route: 065
  12. SENOKOT [Concomitant]
     Active Substance: SENNOSIDES
     Route: 065

REACTIONS (4)
  - Dysphagia [Unknown]
  - Fatigue [Unknown]
  - Death [Fatal]
  - Muscular weakness [Unknown]

NARRATIVE: CASE EVENT DATE: 20061024
